FAERS Safety Report 8078531-5 (Version None)
Quarter: 2012Q1

REPORT INFORMATION
  Report Type: 
  Country: None (occurrence: None)
  Receive Date: 20120127
  Receipt Date: 20110103
  Transmission Date: 20120608
  Serious: No
  Sender: FDA-Public Use
  Company Number: US-ABBOTT-11P-163-0694972-00

PATIENT
  Age: 63 Year
  Sex: Female

DRUGS (3)
  1. DIOVAN [Concomitant]
     Indication: HYPERTENSION
     Dosage: 320/25 DAILY
  2. CARVEDILOL [Concomitant]
     Indication: PRODUCT USED FOR UNKNOWN INDICATION
  3. HUMIRA [Suspect]
     Indication: PSORIASIS
     Dates: start: 20101001, end: 20110101

REACTIONS (4)
  - DRUG INEFFECTIVE [None]
  - PSORIASIS [None]
  - CONDITION AGGRAVATED [None]
  - NERVOUSNESS [None]
